FAERS Safety Report 20336121 (Version 1)
Quarter: 2022Q1

REPORT INFORMATION
  Report Type: Spontaneous
  Country: US (occurrence: None)
  Receive Date: 20220114
  Receipt Date: 20220114
  Transmission Date: 20220423
  Serious: Yes (Other)
  Sender: FDA-Public Use
  Company Number: None

PATIENT
  Age: 34 Year
  Sex: Female
  Weight: 65.32 kg

DRUGS (1)
  1. SUBOXONE [Suspect]
     Active Substance: BUPRENORPHINE HYDROCHLORIDE\NALOXONE HYDROCHLORIDE
     Indication: Drug use disorder
     Dosage: OTHER QUANTITY : 12/3 MG;?FREQUENCY : DAILY;?
     Route: 060
     Dates: start: 20211221, end: 20211227

REACTIONS (3)
  - Urticaria [None]
  - Pharyngeal swelling [None]
  - Stomatitis [None]

NARRATIVE: CASE EVENT DATE: 20211227
